FAERS Safety Report 6129295-3 (Version None)
Quarter: 2009Q1

REPORT INFORMATION
  Report Type: 
  Country: None (occurrence: None)
  Receive Date: 20090323
  Receipt Date: 20090323
  Transmission Date: 20090719
  Serious: Yes (Life-Threatening)
  Sender: FDA-Public Use
  Company Number: None

PATIENT
  Sex: Female
  Weight: 72.5755 kg

DRUGS (1)
  1. GANIRELIX ACETATE INJECTION [Suspect]
     Indication: IN VITRO FERTILISATION
     Dosage: FULL DOSE DAILY FOR SIX DAYS SQ
     Dates: start: 20090314, end: 20090319

REACTIONS (2)
  - ANAPHYLACTIC REACTION [None]
  - DOCUMENTED HYPERSENSITIVITY TO ADMINISTERED DRUG [None]
